FAERS Safety Report 8507198-4 (Version None)
Quarter: 2012Q3

REPORT INFORMATION
  Report Type: 
  Country: None (occurrence: None)
  Receive Date: 20120712
  Receipt Date: 20120703
  Transmission Date: 20120928
  Serious: Yes (Hospitalization)
  Sender: FDA-Public Use
  Company Number: JP-CELGENEUS-087-50794-12070573

PATIENT
  Age: 61 Year
  Sex: Male
  Weight: 65 kg

DRUGS (14)
  1. DIOVAN [Concomitant]
     Route: 065
  2. ALINAMIN-F [Concomitant]
     Route: 065
  3. ASPARA-CA [Concomitant]
     Route: 065
  4. VITAMIN B12 [Concomitant]
     Route: 065
  5. VIDAZA [Suspect]
     Dosage: 75 MILLIGRAM/SQ. METER
     Route: 058
     Dates: start: 20120403, end: 20120407
  6. ZOLPIDEM [Concomitant]
     Route: 065
  7. RESTAMIN [Concomitant]
     Route: 065
  8. LANSOPRAZOLE [Concomitant]
     Route: 065
  9. ADENOSINE [Concomitant]
     Route: 065
  10. RAMELTEON [Concomitant]
     Route: 065
     Dates: start: 20120123
  11. LEXAPRO [Concomitant]
     Route: 065
  12. DORIPENEM MONOHYDRATE [Concomitant]
     Route: 065
     Dates: start: 20120222, end: 20120225
  13. VIDAZA [Suspect]
     Dosage: 75 MILLIGRAM/SQ. METER
     Route: 058
     Dates: start: 20120123, end: 20120129
  14. SILECE [Concomitant]
     Route: 065

REACTIONS (2)
  - RENAL FAILURE ACUTE [None]
  - ENTEROCOLITIS [None]
